FAERS Safety Report 6203234-9 (Version None)
Quarter: 2009Q2

REPORT INFORMATION
  Report Type: 
  Country: None (occurrence: None)
  Receive Date: 20090527
  Receipt Date: 20090521
  Transmission Date: 20091009
  Serious: Yes (Other)
  Sender: FDA-Public Use
  Company Number: US-ROCHE-598569

PATIENT
  Sex: Male
  Weight: 109.3 kg

DRUGS (17)
  1. BONIVA [Suspect]
     Indication: OSTEOPENIA
     Route: 048
     Dates: start: 20081008, end: 20081121
  2. ADVAIR HFA [Concomitant]
     Indication: ASTHMA
     Dosage: DRUG: ADVAIR HFA, FORM PUFF, STRENGTH: 115/ 21,
     Route: 055
     Dates: start: 20081008
  3. AVANDIA [Concomitant]
  4. OMEPRAZOLE [Concomitant]
  5. FOLIC ACID [Concomitant]
  6. CALCITRIOL [Concomitant]
  7. GINSENG [Concomitant]
     Dosage: DRUG: GENSING
  8. CORDYCEPS SINENSIS [Concomitant]
     Dosage: DRUG: CORDYCEPS SINES
  9. REISHI MUSHROOM [Concomitant]
  10. UNKNOWN MEDICATION FOR PAIN [Concomitant]
  11. UNSPECIFIED DRUG [Concomitant]
     Dosage: DRUG: LANTIS
  12. VERAMYST [Concomitant]
     Dosage: ROUTE: NASAL SPRAY, FREQUENCY: QD
     Route: 050
     Dates: start: 20070716
  13. ASTELIN [Concomitant]
     Dosage: ROUTE: NASAL SPRAY, FREQUENCY: QD
     Route: 050
     Dates: start: 20050913
  14. ALBUTEROL [Concomitant]
     Dosage: DRUG: ALBUTEROL HFA, 2 PUFF Q6 HRS PRN
     Route: 055
     Dates: start: 20050629
  15. NEURONTIN [Concomitant]
     Route: 048
  16. CALCIUM [Concomitant]
  17. VITAMINE D [Concomitant]
     Dosage: DOSE: 400-800 IU

REACTIONS (8)
  - CONSTIPATION [None]
  - DISORIENTATION [None]
  - DIZZINESS [None]
  - FALL [None]
  - GASTRIC DISORDER [None]
  - HYDROCELE [None]
  - LOSS OF CONSCIOUSNESS [None]
  - NECK PAIN [None]
